FAERS Safety Report 5541537-1 (Version None)
Quarter: 2007Q4

REPORT INFORMATION
  Report Type: 
  Country: None (occurrence: None)
  Receive Date: 20071210
  Receipt Date: 20071207
  Transmission Date: 20080405
  Serious: Yes (Life-Threatening, Hospitalization, Other)
  Sender: FDA-Public Use
  Company Number: GB-BRISTOL-MYERS SQUIBB COMPANY-14007173

PATIENT
  Age: 79 Year
  Sex: Male

DRUGS (6)
  1. TRAZODONE HCL [Suspect]
     Indication: DEPRESSION
     Route: 048
     Dates: start: 20070516, end: 20070903
  2. COVERSYL PLUS [Concomitant]
  3. DIGOXIN [Concomitant]
     Indication: CARDIAC FAILURE
  4. FRUSEMIDE [Concomitant]
  5. VERAPAMIL [Concomitant]
  6. WARFARIN SODIUM [Concomitant]
     Indication: ATRIAL FIBRILLATION

REACTIONS (1)
  - ANAEMIA [None]
